FAERS Safety Report 4279733-6 (Version None)
Quarter: 2004Q1

REPORT INFORMATION
  Report Type: 
  Country: None (occurrence: None)
  Receive Date: 20040127
  Receipt Date: 20040121
  Transmission Date: 20041129
  Serious: Yes (Disabling, Other)
  Sender: FDA-Public Use
  Company Number: WAES 0401GBR00192

PATIENT
  Age: 63 Year
  Sex: Female
  Weight: 70 kg

DRUGS (4)
  1. ACETAMINOPHEN [Concomitant]
     Dates: start: 20030401
  2. ALBUTEROL SULFATE [Concomitant]
     Dates: start: 19960711
  3. BECLOMETHASONE DIPROPIONATE [Concomitant]
     Dates: start: 19960711
  4. VIOXX [Suspect]
     Indication: LOCALISED OSTEOARTHRITIS
     Route: 048
     Dates: start: 20030423, end: 20030430

REACTIONS (1)
  - VISUAL DISTURBANCE [None]
